FAERS Safety Report 4557720-8 (Version None)
Quarter: 2005Q1

REPORT INFORMATION
  Report Type: 
  Country: None (occurrence: None)
  Receive Date: 20050118
  Receipt Date: 20050107
  Transmission Date: 20050727
  Serious: Yes (Hospitalization, Other)
  Sender: FDA-Public Use
  Company Number: HQWYE451710JAN05

PATIENT
  Age: 37 Year
  Sex: Female

DRUGS (4)
  1. RHINADVIL (IBUPROFEN/PSEUDOEPHEDRINE, TABLET) [Suspect]
     Indication: CHRONIC SINUSITIS
     Dosage: ORAL
     Route: 048
     Dates: start: 20041102, end: 20041105
  2. CIPROFLOXACIN HCL [Suspect]
     Indication: CHRONIC SINUSITIS
     Dates: start: 20041102, end: 20041105
  3. STILNOX (ZOLPIDEM) [Concomitant]
  4. IMOVANE (ZOPICLONE) [Concomitant]

REACTIONS (1)
  - RENAL FAILURE ACUTE [None]
